FAERS Safety Report 8410282-7 (Version None)
Quarter: 2012Q2

REPORT INFORMATION
  Report Type: 
  Country: None (occurrence: None)
  Receive Date: 20120529
  Receipt Date: 20120515
  Transmission Date: 20120825
  Serious: Yes (Other)
  Sender: FDA-Public Use
  Company Number: JPI-P-020308

PATIENT
  Age: 43 Year
  Sex: Female
  Weight: 70.3075 kg

DRUGS (8)
  1. ARMODAFINIL [Concomitant]
  2. ESTROGENS CONJUGATED [Concomitant]
  3. CITALOPRAM [Concomitant]
  4. LEVOTHYROXINE SODIUM [Concomitant]
  5. ASPIRIN [Concomitant]
  6. ACETAMINOPHEN/HYDROCODONE BITARTRATE [Concomitant]
  7. XYREM [Suspect]
     Indication: CATAPLEXY
     Dosage: 9 GM (4.5 GM, 2 IN 1 D), ORAL
     Route: 048
     Dates: start: 20110501
  8. ALPRAZOLAM [Concomitant]

REACTIONS (1)
  - CHOLELITHIASIS [None]
